FAERS Safety Report 24881655 (Version 1)
Quarter: 2025Q1

REPORT INFORMATION
  Report Type: Spontaneous
  Country: CN (occurrence: CN)
  Receive Date: 20250124
  Receipt Date: 20250124
  Transmission Date: 20250408
  Serious: Yes (Other)
  Sender: GE HEALTHCARE
  Company Number: CN-GE HEALTHCARE-2025CSU000667

PATIENT
  Age: 56 Year
  Sex: Male
  Weight: 70 kg

DRUGS (1)
  1. OMNIPAQUE [Suspect]
     Active Substance: IOHEXOL
     Indication: Angiogram cerebral
     Route: 042
     Dates: start: 20241218, end: 20241218

REACTIONS (2)
  - Ventricular fibrillation [Not Recovered/Not Resolved]
  - Contrast encephalopathy [Not Recovered/Not Resolved]

NARRATIVE: CASE EVENT DATE: 20241218
